FAERS Safety Report 4850155-X (Version None)
Quarter: 2005Q4

REPORT INFORMATION
  Report Type: 
  Country: None (occurrence: None)
  Receive Date: 20051123
  Receipt Date: 20050711
  Transmission Date: 20060501
  Serious: Yes (Other)
  Sender: FDA-Public Use
  Company Number: 2005099170

PATIENT
  Age: 61 Year
  Sex: Female
  Weight: 52.1637 kg

DRUGS (2)
  1. LIPITOR [Suspect]
     Indication: BLOOD CHOLESTEROL INCREASED
     Dosage: EVERY DAY ORAL
     Route: 048
     Dates: start: 20050101
  2. CLIMARA [Suspect]
     Indication: ILL-DEFINED DISORDER
     Dosage: TRANSDERMAL
     Route: 062
     Dates: end: 20050701

REACTIONS (3)
  - EYE HAEMORRHAGE [None]
  - VISION BLURRED [None]
  - VISUAL DISTURBANCE [None]
